FAERS Safety Report 23835614 (Version 1)
Quarter: 2024Q2

REPORT INFORMATION
  Report Type: Spontaneous
  Country: US (occurrence: US)
  Receive Date: 20240509
  Receipt Date: 20240509
  Transmission Date: 20240716
  Serious: No
  Sender: FDA-Public Use
  Company Number: US-BRISTOL-MYERS SQUIBB COMPANY-2024-072273

PATIENT
  Age: 71 Year
  Sex: Female
  Weight: 77.56 kg

DRUGS (2)
  1. POMALYST [Suspect]
     Active Substance: POMALIDOMIDE
     Indication: Plasma cell myeloma
     Route: 048
     Dates: start: 20240404
  2. POMALYST [Suspect]
     Active Substance: POMALIDOMIDE

REACTIONS (1)
  - White blood cell count decreased [Unknown]
